FAERS Safety Report 18849921 (Version 5)
Quarter: 2023Q2

REPORT INFORMATION
  Report Type: Report from Study
  Country: CA (occurrence: CA)
  Receive Date: 20210205
  Receipt Date: 20230515
  Transmission Date: 20230722
  Serious: Yes (Other)
  Sender: FDA-Public Use
  Company Number: CA-TAKEDA-2020TUS020946

PATIENT
  Age: 25 Year
  Sex: Female

DRUGS (9)
  1. VEDOLIZUMAB [Suspect]
     Active Substance: VEDOLIZUMAB
     Indication: Crohn^s disease
     Dosage: 300 MILLIGRAM
     Route: 042
     Dates: start: 20190919
  2. VEDOLIZUMAB [Suspect]
     Active Substance: VEDOLIZUMAB
     Dosage: 300 MILLIGRAM, Q6WEEKS
     Route: 042
     Dates: start: 20200501
  3. VEDOLIZUMAB [Suspect]
     Active Substance: VEDOLIZUMAB
     Dosage: 300 MILLIGRAM, Q4WEEKS
     Route: 042
     Dates: start: 202303
  4. DIAZEPAM\ISOPROPAMIDE IODIDE [Concomitant]
     Active Substance: DIAZEPAM\ISOPROPAMIDE IODIDE
     Indication: Herpes zoster
     Dosage: UNK
  5. TRAMADOL [Concomitant]
     Active Substance: TRAMADOL
     Dosage: UNK
  6. GRAVOL [Concomitant]
     Active Substance: DIMENHYDRINATE
     Indication: Premedication
     Dosage: 50 MILLIGRAM
     Route: 048
  7. BENADRYL [Concomitant]
     Active Substance: DIPHENHYDRAMINE HYDROCHLORIDE
     Indication: Premedication
     Dosage: 50 MILLIGRAM
     Route: 048
  8. HYDROCORTISONE [Concomitant]
     Active Substance: HYDROCORTISONE
     Indication: Premedication
     Dosage: 50 MILLIGRAM
     Route: 042
  9. TYLENOL [Concomitant]
     Active Substance: ACETAMINOPHEN
     Indication: Premedication
     Dosage: UNK

REACTIONS (11)
  - Crohn^s disease [Unknown]
  - Ileal stenosis [Unknown]
  - Abdominal adhesions [Unknown]
  - Pelvic abscess [Unknown]
  - General physical health deterioration [Unknown]
  - Diarrhoea [Unknown]
  - Asthenia [Unknown]
  - Drug level increased [Unknown]
  - Off label use [Unknown]
  - Dizziness [Unknown]
  - Abdominal pain [Unknown]

NARRATIVE: CASE EVENT DATE: 20191101
